FAERS Safety Report 15222352 (Version 1)
Quarter: 2018Q3

REPORT INFORMATION
  Report Type: Spontaneous
  Country: US (occurrence: US)
  Receive Date: 20180731
  Receipt Date: 20180731
  Transmission Date: 20181010
  Serious: Yes (Hospitalization, Other)
  Sender: FDA-Public Use
  Company Number: US-JNJFOC-20180738709

PATIENT
  Age: 84 Year
  Sex: Female
  Weight: 58.5 kg

DRUGS (4)
  1. ALEVE [Concomitant]
     Active Substance: NAPROXEN SODIUM
  2. IMBRUVICA [Suspect]
     Active Substance: IBRUTINIB
     Indication: WALDENSTROM^S MACROGLOBULINAEMIA
     Route: 048
     Dates: start: 20180606, end: 2018
  3. LEVOTHYROXINE. [Concomitant]
     Active Substance: LEVOTHYROXINE
  4. AMITRIPTYLINE [Concomitant]
     Active Substance: AMITRIPTYLINE

REACTIONS (6)
  - Clostridium difficile infection [Unknown]
  - Off label use [Unknown]
  - Escherichia infection [Unknown]
  - Fall [Unknown]
  - Incorrect dose administered [Unknown]
  - Wrist fracture [Unknown]

NARRATIVE: CASE EVENT DATE: 2018
